FAERS Safety Report 5287049-4 (Version None)
Quarter: 2007Q1

REPORT INFORMATION
  Report Type: 
  Country: None (occurrence: None)
  Receive Date: 20070330
  Receipt Date: 20070322
  Transmission Date: 20070707
  Serious: Yes (Hospitalization, Disabling, Other)
  Sender: FDA-Public Use
  Company Number: 238067

PATIENT
  Age: 59 Year
  Sex: 0

DRUGS (16)
  1. AVASTIN [Suspect]
     Indication: BREAST CANCER METASTATIC
     Dosage: 10  MG/KG, Q2W, INTRAVENOUS
     Route: 042
     Dates: start: 20061018
  2. AVASTIN [Suspect]
  3. TAXOL [Concomitant]
  4. LYRICA [Concomitant]
  5. PAXIL [Concomitant]
  6. TOPROL-XL [Concomitant]
  7. ZOCOR [Concomitant]
  8. PROTONIX [Concomitant]
  9. FEMARA [Concomitant]
  10. NORVASC [Concomitant]
  11. CATAPRES PATCHES (CLONIDINE HYDROCHLORIDE) [Concomitant]
  12. NTG (NITROGLYCERIN) [Concomitant]
  13. AMBIEN [Concomitant]
  14. POTASSIUM CHLORIDE [Concomitant]
  15. CACO3 (CALCIUM CARBONATE) [Concomitant]
  16. LOTREL (AMLODIPINE BESYLATE, BENAZEPRIL HYDROCHLORIDE) [Concomitant]

REACTIONS (7)
  - CONFUSIONAL STATE [None]
  - EYE DISORDER [None]
  - FALL [None]
  - GAIT DISTURBANCE [None]
  - MEMORY IMPAIRMENT [None]
  - MENTAL STATUS CHANGES [None]
  - MUSCULAR WEAKNESS [None]
